FAERS Safety Report 9659417 (Version 2)
Quarter: 2013Q4

REPORT INFORMATION
  Report Type: Spontaneous
  Country: IT (occurrence: IT)
  Receive Date: 20131031
  Receipt Date: 20131031
  Transmission Date: 20140711
  Serious: Yes (Hospitalization)
  Sender: FDA-Public Use
  Company Number: IT-JNJFOC-20130912844

PATIENT
  Age: 14 Year
  Sex: Male
  Weight: 54 kg

DRUGS (2)
  1. RISPERDAL [Suspect]
     Indication: PSYCHOTIC DISORDER
     Route: 048
     Dates: start: 20130901, end: 20130920
  2. RISPERDAL [Suspect]
     Indication: PSYCHOTIC DISORDER
     Route: 048
     Dates: start: 20130920

REACTIONS (2)
  - Intentional overdose [Unknown]
  - Sopor [Recovered/Resolved]
